FAERS Safety Report 5007865-3 (Version None)
Quarter: 2006Q2

REPORT INFORMATION
  Report Type: 
  Country: None (occurrence: None)
  Receive Date: 20060522
  Receipt Date: 20060515
  Transmission Date: 20061013
  Serious: Yes (Death, Hospitalization)
  Sender: FDA-Public Use
  Company Number: PHFR2006GB01713

PATIENT
  Age: 81 Year
  Sex: Female

DRUGS (6)
  1. DICLOFENAC POTASSIUM [Suspect]
     Indication: PAIN IN EXTREMITY
     Dosage: 75 MG, BID
     Route: 048
     Dates: end: 20060423
  2. CITALOPRAM HYDROBROMIDE [Concomitant]
     Dosage: 20MG/DAY
     Route: 048
     Dates: end: 20060424
  3. ANASTROZOLE [Concomitant]
     Dosage: 1MG/DAY
     Route: 048
     Dates: end: 20060424
  4. LORMETAZEPAM [Concomitant]
     Dosage: 0.5MG/DAY
     Route: 048
     Dates: end: 20060424
  5. TRIMETHOPRIM [Concomitant]
     Indication: URINARY TRACT INFECTION
     Dosage: 200MG/DAY
     Route: 048
     Dates: start: 20060422, end: 20060424
  6. IBUPROFEN [Suspect]
     Indication: PAIN IN EXTREMITY
     Dosage: 400 MG, TID
     Route: 048
     Dates: end: 20060425

REACTIONS (6)
  - ASTHENIA [None]
  - ENDOSCOPY [None]
  - GASTROINTESTINAL HAEMORRHAGE [None]
  - LAPAROTOMY [None]
  - LETHARGY [None]
  - MYOCARDIAL INFARCTION [None]
